FAERS Safety Report 17002350 (Version 1)
Quarter: 2019Q4

REPORT INFORMATION
  Report Type: Report from Study
  Country: RO (occurrence: RO)
  Receive Date: 20191106
  Receipt Date: 20191106
  Transmission Date: 20200122
  Serious: Yes (Death)
  Sender: FDA-Public Use
  Company Number: RO-MYLANLABS-2019M1106481

PATIENT
  Age: 65 Year
  Sex: Male
  Weight: 60 kg

DRUGS (1)
  1. ERLOTINIB [Suspect]
     Active Substance: ERLOTINIB
     Indication: PANCREATIC CARCINOMA
     Dosage: 100 MILLIGRAM, QD
     Route: 048
     Dates: start: 2018, end: 201902

REACTIONS (3)
  - Death [Fatal]
  - Vomiting [Unknown]
  - Weight decreased [Unknown]
